FAERS Safety Report 7408884-X (Version None)
Quarter: 2011Q2

REPORT INFORMATION
  Report Type: 
  Country: None (occurrence: None)
  Receive Date: 20110412
  Receipt Date: 20110407
  Transmission Date: 20111010
  Serious: Yes (Death, Hospitalization)
  Sender: FDA-Public Use
  Company Number: PHHY2011SG27117

PATIENT
  Sex: Male

DRUGS (1)
  1. GLEEVEC [Suspect]
     Indication: CHRONIC MYELOID LEUKAEMIA
     Dosage: 400 MG, UNK
     Dates: start: 20020326

REACTIONS (5)
  - RESPIRATORY FAILURE [None]
  - BRAIN INJURY [None]
  - PNEUMONIA [None]
  - CEREBROVASCULAR ACCIDENT [None]
  - FLUID RETENTION [None]
